FAERS Safety Report 20996905 (Version 1)
Quarter: 2022Q2

REPORT INFORMATION
  Report Type: Spontaneous
  Country: CA (occurrence: CA)
  Receive Date: 20220623
  Receipt Date: 20220623
  Transmission Date: 20220721
  Serious: Yes (Hospitalization)
  Sender: FDA-Public Use
  Company Number: CA-JNJFOC-20220633338

PATIENT
  Age: 79 Year
  Sex: Female
  Weight: 77 kg

DRUGS (1)
  1. REMICADE [Suspect]
     Active Substance: INFLIXIMAB
     Indication: Colitis ulcerative
     Route: 041

REACTIONS (5)
  - Swelling [Not Recovered/Not Resolved]
  - Herpes ophthalmic [Not Recovered/Not Resolved]
  - Herpes zoster [Not Recovered/Not Resolved]
  - Pain [Not Recovered/Not Resolved]
  - Off label use [Not Recovered/Not Resolved]
